FAERS Safety Report 19474374 (Version 1)
Quarter: 2021Q2

REPORT INFORMATION
  Report Type: Spontaneous
  Country: US (occurrence: US)
  Receive Date: 20210629
  Receipt Date: 20210629
  Transmission Date: 20210717
  Serious: No
  Sender: FDA-Public Use
  Company Number: US-BAUSCH-BL-2021-020867

PATIENT
  Age: 45 Year
  Sex: Female
  Weight: 68.95 kg

DRUGS (6)
  1. ZOLPIDEM [Concomitant]
     Active Substance: ZOLPIDEM TARTRATE
     Indication: INITIAL INSOMNIA
     Dosage: GENERIC VERSION OF AMBIEN, TAKING THIS MEDICATION WITHIN THE YEAR (SEP/2020 OR OCT/2020)
     Dates: start: 2020
  2. CARDIZEM [Suspect]
     Active Substance: DILTIAZEM HYDROCHLORIDE
     Indication: HEART RATE INCREASED
     Route: 065
  3. DEPO?PROVERA [Concomitant]
     Active Substance: MEDROXYPROGESTERONE ACETATE
     Indication: PRODUCT USED FOR UNKNOWN INDICATION
     Dosage: EVERY 3 MONTHS BY INJECTION, UNKNOWN DOSAGE, TAKING FOR 17 YEARS AND WILL BE 18 YEARS IN JUL/2021
  4. PFIZER?BIONTECH COVID?19 VACCINE [Suspect]
     Active Substance: TOZINAMERAN
     Indication: COVID-19 IMMUNISATION
     Dosage: UNKNOWN DOSAGE, GIVEN IN LEFT ARM
     Route: 065
     Dates: start: 20210202
  5. PFIZER?BIONTECH COVID?19 VACCINE [Suspect]
     Active Substance: TOZINAMERAN
     Dosage: UNKNOWN DOSAGE, RECEIVED IN LEFT ARM
     Route: 065
     Dates: start: 20210223
  6. CYMBALTA [Concomitant]
     Active Substance: DULOXETINE HYDROCHLORIDE
     Indication: NERVE BLOCK
     Dosage: TWO 20 MG TABLETS, TAKING THIS ABOUT A YEAR AND A HALF
     Dates: start: 202001

REACTIONS (5)
  - Headache [Recovered/Resolved]
  - Pain [Recovered/Resolved]
  - Pyrexia [Recovered/Resolved]
  - Heart rate increased [Recovering/Resolving]
  - Packaging design issue [Unknown]

NARRATIVE: CASE EVENT DATE: 202102
